FAERS Safety Report 16096247 (Version 6)
Quarter: 2020Q1

REPORT INFORMATION
  Report Type: Report from Study
  Country: US (occurrence: US)
  Receive Date: 20190320
  Receipt Date: 20200210
  Transmission Date: 20200409
  Serious: Yes (Hospitalization)
  Sender: FDA-Public Use
  Company Number: US-ACTELION-A-NJ2019-187846

PATIENT
  Sex: Female
  Weight: 57.6 kg

DRUGS (3)
  1. WARFARIN [Concomitant]
     Active Substance: WARFARIN
  2. OPSUMIT [Suspect]
     Active Substance: MACITENTAN
     Indication: PULMONARY ARTERIAL HYPERTENSION
     Dosage: 10 MG, QD
     Route: 048
  3. VELETRI [Suspect]
     Active Substance: EPOPROSTENOL
     Indication: PULMONARY ARTERIAL HYPERTENSION
     Dosage: 44 NG/KG, PER MIN
     Route: 042

REACTIONS (9)
  - Diarrhoea [Unknown]
  - Dyspnoea exertional [Unknown]
  - Device related infection [Unknown]
  - Pain in jaw [Unknown]
  - Small intestinal obstruction [Unknown]
  - Catheter site rash [Unknown]
  - Catheter management [Unknown]
  - Palpitations [Unknown]
  - Flushing [Unknown]
